FAERS Safety Report 6731066-1 (Version None)
Quarter: 2010Q2

REPORT INFORMATION
  Report Type: 
  Country: None (occurrence: None)
  Receive Date: 20100518
  Receipt Date: 20100507
  Transmission Date: 20101027
  Serious: Yes (Other)
  Sender: FDA-Public Use
  Company Number: HK-SANOFI-AVENTIS-2010SA027499

PATIENT

DRUGS (2)
  1. ELOXATIN [Suspect]
  2. XELODA [Suspect]
     Route: 048

REACTIONS (1)
  - LEUKOENCEPHALOPATHY [None]
